FAERS Safety Report 9898749 (Version 3)
Quarter: 2014Q2

REPORT INFORMATION
  Report Type: Report from Study
  Country: JP (occurrence: JP)
  Receive Date: 20140214
  Receipt Date: 20140529
  Transmission Date: 20141212
  Serious: Yes (Death, Life-Threatening, Hospitalization)
  Sender: FDA-Public Use
  Company Number: JP-BRISTOL-MYERS SQUIBB COMPANY-20194999

PATIENT
  Age: 48 Year
  Sex: Male
  Weight: 64 kg

DRUGS (13)
  1. SPRYCEL [Suspect]
     Indication: ACUTE LYMPHOCYTIC LEUKAEMIA
     Dosage: 20DEC13-22JAN14
     Route: 048
     Dates: start: 20131220, end: 20140121
  2. BAKTAR [Suspect]
     Indication: PROPHYLAXIS
     Route: 048
     Dates: start: 20130911, end: 20140121
  3. MIYA-BM [Concomitant]
     Dosage: TAB
     Route: 048
  4. SAMSCA [Concomitant]
     Dosage: TAB
     Route: 048
     Dates: start: 20131106, end: 20140128
  5. ELENTAL [Concomitant]
     Dosage: POWDER
     Route: 048
  6. OXYCONTIN [Concomitant]
     Dosage: TAB
     Route: 048
     Dates: start: 20130911
  7. OXYNORM [Concomitant]
     Dosage: TAB
     Route: 048
  8. MEILAX [Concomitant]
     Dosage: TAB
     Route: 048
     Dates: start: 20131203
  9. LENDORMIN [Concomitant]
     Dosage: TAB
     Route: 048
     Dates: start: 20131203
  10. ROHYPNOL [Concomitant]
     Dosage: TAB
     Route: 048
     Dates: start: 20131203
  11. NEXIUM [Concomitant]
     Dosage: CAPSULE
     Route: 048
     Dates: start: 20130919, end: 20140121
  12. LASIX [Concomitant]
     Indication: ASCITES
     Route: 048
     Dates: start: 20131106, end: 20140121
  13. ZOLOFT [Concomitant]
     Indication: DEPRESSION
     Route: 048
     Dates: start: 20131203, end: 20140121

REACTIONS (2)
  - Malignant neoplasm progression [Fatal]
  - Stevens-Johnson syndrome [Recovered/Resolved]
